FAERS Safety Report 10171174 (Version 2)
Quarter: 2014Q2

REPORT INFORMATION
  Report Type: Spontaneous
  Country: US (occurrence: US)
  Receive Date: 20140514
  Receipt Date: 20140529
  Transmission Date: 20141212
  Serious: Yes (Other)
  Sender: FDA-Public Use
  Company Number: US-PERRIGO-14US004809

PATIENT
  Age: 58 Year
  Sex: Female
  Weight: 106.58 kg

DRUGS (8)
  1. IBUPROFEN 200MG-DIPHENHYDRAMINE CITRATE 38 MG 8K7 [Suspect]
     Indication: PAIN
     Dosage: 1 TO 2 TABLETS, QD, PRN
     Route: 048
     Dates: end: 20131220
  2. MOTRIN IB [Suspect]
     Indication: PAIN
     Dosage: 200 TO 400 MG, PRN
     Route: 048
     Dates: end: 20131220
  3. WARFARIN [Concomitant]
     Indication: ANTICOAGULANT THERAPY
     Dosage: UNK, QD
     Route: 048
  4. SIMVASTATIN [Concomitant]
     Indication: BLOOD CHOLESTEROL INCREASED
     Dosage: UNK, QD
     Route: 048
  5. ANTIHYPERTENSIVES [Concomitant]
     Indication: HYPERTENSION
     Dosage: UNK, BID
     Route: 048
  6. PEPCID AC [Concomitant]
     Indication: GASTROOESOPHAGEAL REFLUX DISEASE
     Dosage: UNK, QD TO BID
     Route: 048
  7. OMEGA 3                            /01334101/ [Concomitant]
     Indication: SUPPLEMENTATION THERAPY
     Dosage: UNK, BID
     Route: 048
  8. GLIPIZIDE [Concomitant]
     Indication: DIABETES MELLITUS
     Dosage: UNK, QD
     Route: 048

REACTIONS (3)
  - Renal impairment [Not Recovered/Not Resolved]
  - Incorrect dose administered [Recovered/Resolved]
  - Off label use [Recovered/Resolved]
